FAERS Safety Report 24581860 (Version 2)
Quarter: 2024Q4

REPORT INFORMATION
  Report Type: Spontaneous
  Country: DK (occurrence: DK)
  Receive Date: 20241105
  Receipt Date: 20241108
  Transmission Date: 20250115
  Serious: Yes (Hospitalization)
  Sender: PFIZER
  Company Number: DK-ROCHE-10000112619

PATIENT
  Age: 76 Year
  Sex: Female
  Weight: 61 kg

DRUGS (23)
  1. DOXORUBICIN HYDROCHLORIDE [Suspect]
     Active Substance: DOXORUBICIN HYDROCHLORIDE
     Indication: Diffuse large B-cell lymphoma
     Dosage: 87 MG, EVERY 3 WEEKS
     Route: 042
     Dates: start: 20240709
  2. DOXORUBICIN HYDROCHLORIDE [Suspect]
     Active Substance: DOXORUBICIN HYDROCHLORIDE
     Dosage: ON 01OCT2024, RECEIVED THE MOST RECENT DOSE OF DOXORUBICIN PRIOR TO SAE
     Dates: start: 20241001
  3. POLATUZUMAB VEDOTIN [Suspect]
     Active Substance: POLATUZUMAB VEDOTIN
     Indication: Diffuse large B-cell lymphoma
     Dosage: 110.9 MG, EVERY 3 WEEKS
     Route: 042
     Dates: start: 20240710
  4. POLATUZUMAB VEDOTIN [Suspect]
     Active Substance: POLATUZUMAB VEDOTIN
     Dosage: ON 01OCT2024, RECEIVED THE MOST RECENT DOSE OF POLATUZUMAB VEDOTIN
     Dates: start: 20241001
  5. RITUXIMAB [Suspect]
     Active Substance: RITUXIMAB
     Indication: Diffuse large B-cell lymphoma
     Dosage: 600 MG, EVERY 3 WEEKS
     Route: 042
     Dates: start: 20240709
  6. RITUXIMAB [Suspect]
     Active Substance: RITUXIMAB
     Dosage: 600 MG, ON 01OCT2024, RECEIVED THE MOST RECENT DOSE OF RITUXIMAB PRIOR TO SAE
     Dates: start: 20241001
  7. CYCLOPHOSPHAMIDE [Suspect]
     Active Substance: CYCLOPHOSPHAMIDE
     Indication: Diffuse large B-cell lymphoma
     Dosage: 1298 MG, EVERY 3 WEEKS
     Route: 042
     Dates: start: 20240709
  8. CYCLOPHOSPHAMIDE [Suspect]
     Active Substance: CYCLOPHOSPHAMIDE
     Dosage: RECEIVED THE MOST RECENT DOSE OF CYCLOPHOSPHAMIDE PRIOR TO SAE
  9. PREDNISONE [Suspect]
     Active Substance: PREDNISONE
     Indication: Diffuse large B-cell lymphoma
     Dosage: 100 MG, EVERY 3 WEEKS
     Route: 048
     Dates: start: 20240709
  10. PREDNISONE [Suspect]
     Active Substance: PREDNISONE
     Dosage: ON 05OCT2024, RECEIVED THE MOST RECENT DOSE OF PREDNISONE PRIOR TO SAE
     Dates: start: 20241005
  11. ACETAMINOPHEN [Concomitant]
     Active Substance: ACETAMINOPHEN
     Dosage: 1000 MG, 1X/DAY
     Route: 048
     Dates: start: 20241001, end: 20241001
  12. ACETAMINOPHEN [Concomitant]
     Active Substance: ACETAMINOPHEN
     Dosage: 1000 MG, AS NEEDED
     Route: 048
     Dates: start: 20240701
  13. SULFAMETHOXAZOLE\TRIMETHOPRIM [Concomitant]
     Active Substance: SULFAMETHOXAZOLE\TRIMETHOPRIM
     Dosage: 1 DF, 1X/DAY
     Route: 048
     Dates: start: 20240709
  14. ACYCLOVIR [Concomitant]
     Active Substance: ACYCLOVIR
     Dosage: 800 MG, 1X/DAY
     Route: 048
     Dates: start: 20240709
  15. UNIKALK FORTE [Concomitant]
     Dosage: 1 DF, 1X/DAY
     Route: 048
     Dates: start: 20240709
  16. METOCLOPRAMIDE [Concomitant]
     Active Substance: METOCLOPRAMIDE
     Indication: Nausea
     Dosage: 10 MG, AS NEEDED
     Route: 048
     Dates: start: 20240709
  17. ZOPICLONE [Concomitant]
     Active Substance: ZOPICLONE
     Indication: Insomnia
     Dosage: 3.75 MG, AS NEEDED
     Route: 048
     Dates: start: 20240730
  18. PANTOPRAZOLE [Concomitant]
     Active Substance: PANTOPRAZOLE
     Dosage: 20 MG, 1X/DAY
     Route: 048
     Dates: start: 20241001, end: 20241005
  19. ONDANSETRON [Concomitant]
     Active Substance: ONDANSETRON
     Dosage: 16 MG, 1X/DAY
     Route: 048
     Dates: start: 20241001, end: 20241001
  20. ALLOPURINOL [Concomitant]
     Active Substance: ALLOPURINOL
     Dosage: 300 MG, 1X/DAY
     Route: 048
     Dates: start: 20241001, end: 20241005
  21. CETIRIZINE HYDROCHLORIDE [Concomitant]
     Active Substance: CETIRIZINE HYDROCHLORIDE
     Dosage: 10 MG, 1X/DAY
     Route: 048
     Dates: start: 20241001, end: 20241001
  22. PEGFILGRASTIM [Concomitant]
     Active Substance: PEGFILGRASTIM
     Dosage: 6 MG, SINGLE
     Route: 058
     Dates: start: 20241004, end: 20241004
  23. MAGNESIUMHYDROXIDE [Concomitant]
     Dosage: 1000 MG, 1X/DAY
     Route: 048
     Dates: start: 20241021

REACTIONS (1)
  - Febrile neutropenia [Recovered/Resolved]

NARRATIVE: CASE EVENT DATE: 20241019
